FAERS Safety Report 8102505 (Version 4)
Quarter: 2012Q4

REPORT INFORMATION
  Report Type: Report from Study
  Country: US (occurrence: US)
  Receive Date: 20110823
  Receipt Date: 20121023
  Transmission Date: 20130627
  Serious: Yes (Hospitalization, Other)
  Sender: FDA-Public Use
  Company Number: US-ABBOTT-11P-163-0848005-00

PATIENT
  Age: 64 None
  Sex: Female
  Weight: 81.72 kg

DRUGS (16)
  1. HUMIRA 40 MG/0.8 ML PEN [Suspect]
     Indication: PSORIASIS
     Route: 058
     Dates: start: 20110710, end: 20110710
  2. HUMIRA 40 MG/0.8 ML PEN [Suspect]
     Dates: start: 20120717, end: 20120730
  3. UNKNOWN ANTIBIOTIC [Concomitant]
     Indication: SURGERY
  4. UNKNOWN ANTIBIOTIC [Concomitant]
     Indication: INFECTION PROPHYLAXIS
  5. TOPROL [Concomitant]
     Indication: HYPERTENSION
  6. DILTIAZEM [Concomitant]
     Indication: HYPERTENSION
  7. DILTIAZEM [Concomitant]
     Indication: BLOOD PRESSURE
  8. ASPIRIN [Concomitant]
     Indication: PROPHYLAXIS
     Dosage: Low dose; daily
  9. LOSARTAN [Concomitant]
     Indication: HYPERTENSION
  10. LOSARTAN [Concomitant]
     Indication: BLOOD PRESSURE
  11. FLUOXETINE [Concomitant]
     Indication: DEPRESSION
  12. SIMVASTATIN [Concomitant]
     Indication: HYPERLIPIDAEMIA
  13. SIMVASTATIN [Concomitant]
     Indication: BLOOD CHOLESTEROL INCREASED
  14. FISH OIL [Concomitant]
     Indication: PRODUCT USED FOR UNKNOWN INDICATION
  15. VITAMIN D [Concomitant]
     Indication: VITAMIN D DEFICIENCY
  16. METOPROLOL [Concomitant]
     Indication: BLOOD PRESSURE

REACTIONS (8)
  - Intestinal obstruction [Recovering/Resolving]
  - Abdominal pain [Recovering/Resolving]
  - Abdominal distension [Recovering/Resolving]
  - Intestinal stenosis [Recovered/Resolved]
  - Diverticulitis [Recovered/Resolved]
  - Incisional hernia [Recovered/Resolved]
  - Psoriasis [Not Recovered/Not Resolved]
  - Gastrointestinal disorder [Recovered/Resolved]
